FAERS Safety Report 7138023-4 (Version None)
Quarter: 2010Q4

REPORT INFORMATION
  Report Type: 
  Country: None (occurrence: None)
  Receive Date: 20101103
  Receipt Date: 20100908
  Transmission Date: 20110411
  Serious: Yes (Hospitalization, Other)
  Sender: FDA-Public Use
  Company Number: US-WYE-H17418510

PATIENT
  Age: 42 Year
  Sex: Male
  Weight: 81.72 kg

DRUGS (8)
  1. EFFEXOR XR [Suspect]
     Indication: BIPOLAR DISORDER
     Dosage: 37.5 MG 1X PER 1 DAY, ORAL
     Route: 048
     Dates: start: 20100205, end: 20100815
  2. EFFEXOR XR [Suspect]
     Indication: BIPOLAR DISORDER
     Dosage: 37.5 MG 1X PER 1 DAY, ORAL
     Route: 048
     Dates: start: 20050101
  3. EFFEXOR XR [Suspect]
     Indication: BIPOLAR DISORDER
     Dosage: 37.5 MG 1X PER 1 DAY, ORAL
     Route: 048
     Dates: start: 20100908
  4. LAMICTAL [Concomitant]
  5. TRILEPTAL [Concomitant]
  6. TOPAMAX [Concomitant]
  7. METOPROLOL (METPROLOL) [Concomitant]
  8. ADVAIR DISKUS 100/50 [Concomitant]

REACTIONS (10)
  - ANXIETY [None]
  - DISTURBANCE IN ATTENTION [None]
  - DRUG WITHDRAWAL SYNDROME [None]
  - INTENTIONAL DRUG MISUSE [None]
  - MENTAL IMPAIRMENT [None]
  - PARAESTHESIA [None]
  - SUICIDAL IDEATION [None]
  - THINKING ABNORMAL [None]
  - VERTIGO [None]
  - WRONG TECHNIQUE IN DRUG USAGE PROCESS [None]
